FAERS Safety Report 9059948 (Version 1)
Quarter: 2013Q1

REPORT INFORMATION
  Report Type: Spontaneous
  Country: US (occurrence: US)
  Receive Date: 20130212
  Receipt Date: 20130212
  Transmission Date: 20140127
  Serious: No
  Sender: FDA-Public Use
  Company Number: US-FOUGERA-2012FO001091

PATIENT
  Age: 83 Year
  Sex: Male
  Weight: 58.97 kg

DRUGS (1)
  1. OXISTAT [Suspect]
     Indication: TINEA PEDIS
     Route: 061
     Dates: start: 201203, end: 201204

REACTIONS (3)
  - Expired drug administered [Not Recovered/Not Resolved]
  - Application site pain [Not Recovered/Not Resolved]
  - Application site exfoliation [Not Recovered/Not Resolved]
